FAERS Safety Report 19464949 (Version 2)
Quarter: 2021Q2

REPORT INFORMATION
  Report Type: Spontaneous
  Country: US (occurrence: US)
  Receive Date: 20210626
  Receipt Date: 20210626
  Transmission Date: 20210717
  Serious: No
  Sender: FDA-Public Use
  Company Number: US-ASTRAZENECA-2021A500483

PATIENT
  Age: 936 Month
  Sex: Male
  Weight: 79.4 kg

DRUGS (2)
  1. BREZTRI AEROSPHERE [Suspect]
     Active Substance: BUDESONIDE\FORMOTEROL\GLYCOPYRRONIUM
     Indication: ASTHMA
     Dosage: INHALE 1 PUFF BID AND DOCTOR ADVISED THAT PATIENT CAN TAKE 1 PUFF ONCE A DAY EVENTUALLY
     Route: 055
     Dates: start: 202103
  2. BREZTRI AEROSPHERE [Suspect]
     Active Substance: BUDESONIDE\FORMOTEROL\GLYCOPYRRONIUM
     Indication: ASTHMA
     Dosage: 1 PUFF ONCE A DAY
     Route: 055
     Dates: start: 202103

REACTIONS (5)
  - Wrong technique in product usage process [Unknown]
  - Intentional product misuse [Not Recovered/Not Resolved]
  - Drug ineffective [Unknown]
  - Dyspnoea [Not Recovered/Not Resolved]
  - Product dose omission issue [Unknown]

NARRATIVE: CASE EVENT DATE: 202106
